FAERS Safety Report 22264868 (Version 2)
Quarter: 2023Q2

REPORT INFORMATION
  Report Type: Spontaneous
  Country: DE (occurrence: DE)
  Receive Date: 20230428
  Receipt Date: 20230502
  Transmission Date: 20230722
  Serious: No
  Sender: FDA-Public Use
  Company Number: None

PATIENT
  Age: 63 Year
  Sex: Male
  Weight: 95 kg

DRUGS (7)
  1. ELIQUIS [Interacting]
     Active Substance: APIXABAN
     Indication: Product used for unknown indication
     Dates: start: 202303
  2. ATORVASTATIN [Interacting]
     Active Substance: ATORVASTATIN
     Indication: Thrombosis prophylaxis
     Route: 048
     Dates: start: 20220923, end: 20230415
  3. ATORVASTATIN [Interacting]
     Active Substance: ATORVASTATIN
     Indication: Ischaemic heart disease prophylaxis
  4. ATORVASTATIN [Interacting]
     Active Substance: ATORVASTATIN
     Indication: Cerebrovascular accident prophylaxis
  5. VENLAFAXINE HYDROCHLORIDE [Concomitant]
     Active Substance: VENLAFAXINE HYDROCHLORIDE
     Indication: Parkinson^s disease
     Dosage: 37.5 MG RETARD
  6. PRAMIPEXOLE [Concomitant]
     Active Substance: PRAMIPEXOLE
     Indication: Parkinson^s disease
     Dosage: 0.52 MG RETARD
  7. PRAMIPEXOLE [Concomitant]
     Active Substance: PRAMIPEXOLE
     Indication: Parkinson^s disease

REACTIONS (4)
  - Drug interaction [Unknown]
  - Dyspnoea [Recovered/Resolved]
  - Panic disorder [Recovered/Resolved]
  - Anxiety [Recovered/Resolved]

NARRATIVE: CASE EVENT DATE: 20230301
